FAERS Safety Report 9146508 (Version 1)
Quarter: 2013Q1

REPORT INFORMATION
  Report Type: Spontaneous
  Country: US (occurrence: US)
  Receive Date: 20130307
  Receipt Date: 20130307
  Transmission Date: 20140127
  Serious: No
  Sender: FDA-Public Use
  Company Number: US-GLAXOSMITHKLINE-A0983027A

PATIENT
  Age: 76 Year
  Sex: Female

DRUGS (4)
  1. ROPINIROLE HYDROCHLORIDE [Suspect]
     Indication: RESTLESS LEGS SYNDROME
     Dosage: .5MG TWICE PER DAY
     Route: 048
     Dates: start: 2005
  2. PROPRANOLOL [Concomitant]
  3. JANUMET [Concomitant]
  4. LISINOPRIL [Concomitant]

REACTIONS (3)
  - Somnolence [Recovering/Resolving]
  - Memory impairment [Unknown]
  - Overdose [Unknown]
